FAERS Safety Report 10802455 (Version 1)
Quarter: 2015Q1

REPORT INFORMATION
  Report Type: Spontaneous
  Country: FR (occurrence: FR)
  Receive Date: 20150217
  Receipt Date: 20150217
  Transmission Date: 20150721
  Serious: Yes (Other)
  Sender: FDA-Public Use
  Company Number: FR-ACTELION-A-CH2015-112701

PATIENT
  Age: 25 Year
  Sex: Female

DRUGS (3)
  1. TRACLEER [Suspect]
     Active Substance: BOSENTAN\BOSENTAN MONOHYDRATE
     Indication: SCLERODERMA
     Dosage: 125 MG, BID
     Route: 048
     Dates: start: 20131022, end: 20140818
  2. AMLODIPINE [Concomitant]
     Active Substance: AMLODIPINE BESYLATE
     Dosage: 5 MG, PRN
     Route: 048
  3. LEVOTHYROX [Concomitant]
     Active Substance: LEVOTHYROXINE
     Dosage: 75 ?G, OD

REACTIONS (6)
  - Pregnancy after post coital contraception [Unknown]
  - Inhibitory drug interaction [Unknown]
  - C-reactive protein increased [Unknown]
  - Abortion induced [Unknown]
  - Red blood cell sedimentation rate increased [Unknown]
  - Upper respiratory tract infection [Unknown]

NARRATIVE: CASE EVENT DATE: 201404
